FAERS Safety Report 8082003-1 (Version None)
Quarter: 2012Q1

REPORT INFORMATION
  Report Type: 
  Country: None (occurrence: None)
  Receive Date: 20120130
  Receipt Date: 20120120
  Transmission Date: 20120608
  Serious: Yes (Other)
  Sender: FDA-Public Use
  Company Number: PHHY2012IN005377

PATIENT
  Age: 40 Year
  Sex: Male

DRUGS (2)
  1. RIBAVIRIN [Suspect]
     Indication: HEPATITIS C
     Dosage: 800 MG, QD
     Route: 048
  2. PEGINTERFERON ALFA-2A [Suspect]
     Indication: HEPATITIS C
     Dosage: 80 UG, QW
     Route: 058

REACTIONS (7)
  - INFLUENZA LIKE ILLNESS [None]
  - PYREXIA [None]
  - DEAFNESS [None]
  - HAEMOGLOBIN DECREASED [None]
  - DEAFNESS NEUROSENSORY [None]
  - EAR PAIN [None]
  - WEIGHT DECREASED [None]
